FAERS Safety Report 8971209 (Version 1)
Quarter: 2012Q4

REPORT INFORMATION
  Report Type: 
  Country: US (occurrence: US)
  Receive Date: 20121218
  Receipt Date: 20121218
  Transmission Date: 20130627
  Serious: Yes (Other)
  Sender: FDA-Public Use
  Company Number: US-ASTELLAS-2012US012134

PATIENT
  Age: 81 Year
  Sex: Male
  Weight: 65 kg

DRUGS (11)
  1. XTANDI [Suspect]
     Indication: PROSTATE CANCER
     Dosage: 160 mg, UID/QD
     Route: 048
     Dates: start: 20121001
  2. TAMSULOSIN [Concomitant]
     Indication: DYSURIA
     Dosage: 0.04 DF, UID/QD
     Route: 065
  3. LACTULOSE [Concomitant]
     Indication: CONSTIPATION PROPHYLAXIS
     Dosage: 15 ml, UID/QD
     Route: 048
     Dates: start: 2012
  4. MEGESTROL [Concomitant]
     Indication: APPETITE DISORDER
     Dosage: 40 ml, UID/QD
     Route: 048
     Dates: start: 2012
  5. OXYCODON [Concomitant]
     Indication: PAIN
     Dosage: 80 mg, UID/QD
     Route: 065
     Dates: start: 2012
  6. LIDOCAIN                           /00033401/ [Concomitant]
     Indication: METASTASES TO BONE
     Dosage: 700 mg, Q12 hours
     Route: 065
     Dates: start: 2005
  7. GABAPENTIN [Concomitant]
     Indication: NEUROPATHY PERIPHERAL
     Dosage: 600 mg, bid
     Route: 065
     Dates: start: 2005
  8. ZOMETA [Concomitant]
     Indication: OSTEONECROSIS
     Dosage: 15 ml, bid
     Route: 065
     Dates: start: 2010
  9. CHLORHEXIDIN                       /00133001/ [Concomitant]
     Indication: PRODUCT USED FOR UNKNOWN INDICATION
     Dosage: UNK
     Route: 065
  10. AMOXICILLIN [Concomitant]
     Indication: PRODUCT USED FOR UNKNOWN INDICATION
     Dosage: UNK
     Route: 065
  11. HYPNOTICS AND SEDATIVES [Concomitant]
     Indication: PRODUCT USED FOR UNKNOWN INDICATION
     Dosage: UNK
     Route: 065

REACTIONS (1)
  - Emphysema [Unknown]
